FAERS Safety Report 8465045-3 (Version None)
Quarter: 2012Q2

REPORT INFORMATION
  Report Type: 
  Country: None (occurrence: None)
  Receive Date: 20120618
  Receipt Date: 20120605
  Transmission Date: 20120825
  Serious: Yes (Hospitalization, Other)
  Sender: FDA-Public Use
  Company Number: CIP11002243

PATIENT
  Age: 58 Year
  Sex: Female

DRUGS (61)
  1. BONIVA [Suspect]
     Indication: OSTEOPOROSIS
     Dosage: 150 MG ONCE MONTHLY, ORAL
     Route: 048
     Dates: start: 20060306, end: 20091130
  2. RECLAST [Suspect]
     Indication: OSTEOPOROSIS
     Dates: start: 20101101, end: 20111129
  3. HALOPERIDOL LACTATE [Concomitant]
  4. ZOMIG [Concomitant]
  5. SEROQUEL [Concomitant]
  6. ACIPHEX [Concomitant]
  7. FOLPLEX (CYANOCOBALAMIN, FOLIC ACID, PYRIDOXINE HYDROCHLORIDE) [Concomitant]
  8. MIRTAZAPINE [Concomitant]
  9. CARAFATE [Concomitant]
  10. TERAZOSIN HCL [Concomitant]
  11. MECLIZINE /00072801/ (MECLOZINE) [Concomitant]
  12. NYSTATIN W/TRIAMCINOLONE /00945901/ (NYSTATIN, TRIAMCINOLONE ACETONIDE [Concomitant]
  13. PREMARIN [Concomitant]
  14. VITAMIN B12 [Concomitant]
  15. MICARDIS [Concomitant]
  16. SONATA /01454001/ (ZALEPLON) [Concomitant]
  17. GABITRIL [Concomitant]
  18. CIPROFLOXACIN [Concomitant]
  19. LUNESTA [Concomitant]
  20. ANTIPYRINE W/BENZACAINE (BENZOCAINE, PHENAZONE) [Concomitant]
  21. PRECOSE [Concomitant]
  22. VAGIFEM [Concomitant]
  23. EXCEDRIN MIGRAINE (ACETYLSALICYLIC ACID, CAFFEINE, PARACETAMOL) [Concomitant]
  24. CLONAZEPAM [Concomitant]
  25. AXERT [Concomitant]
  26. PAROXETINE HCL [Concomitant]
  27. CYCLOBENZAPRINE [Concomitant]
  28. ORPHENADRINE CITRATE [Concomitant]
  29. CIMETIDINE [Concomitant]
  30. CARISOPRODOL [Concomitant]
  31. BENZTROPINE MESYLATE [Concomitant]
  32. TRAMADOL/APAP (PARACETAMOL, TRAMADOL HYDROCHLORIDE) [Concomitant]
  33. ZOFRAN /00955301/ (ONDANSETRON) [Concomitant]
  34. DOXEPIN HCL [Concomitant]
  35. HYDROXYZINE PAMOATE [Concomitant]
  36. VITAMIN C /00008001/ (ASCORBIC ACID) [Concomitant]
  37. AMOXICILLIN [Concomitant]
  38. FERGON [Concomitant]
  39. QUININE SULFATE [Concomitant]
  40. APAP W/CODEINE (CODEINE, PARACETAMOL) [Concomitant]
  41. BUTALBITAL/APAP (BUTABITAL, PARACETAMOL) [Concomitant]
  42. PYRIDIUM (PHENAZOPYRIDINE HYDROCHLORIDE) [Concomitant]
  43. ALLEGRA-D 12 HOUR [Concomitant]
  44. NORVASC [Concomitant]
  45. CLARINEX /01398501/ (DESLORATADINE) [Concomitant]
  46. FEXOFENADINE HCL [Concomitant]
  47. CENTRUM SILVER /01292501/ (ASCORBIC ACID, CALCIUM, MINERALS NOS, RETIN [Concomitant]
  48. ACTONEL [Suspect]
     Indication: OSTEOPOROSIS
     Dosage: 35 MG ONCE WEEKLY, ORAL
     Route: 048
     Dates: start: 20041206, end: 20060313
  49. PREVIDENT (SODIUM FLUORIDE) [Concomitant]
  50. CHLORAL HYDRATE (CHLORAL HYDRATE) [Concomitant]
  51. PREVALITE [Concomitant]
  52. TRIAMCINOLONE [Concomitant]
  53. ZYRTEC [Concomitant]
  54. MUPIROCIN [Concomitant]
  55. NALTREXONE HYDROCHLORIDE [Concomitant]
  56. CHLORPROMAZINE [Concomitant]
  57. FOSAMAX [Suspect]
     Indication: OSTEOPOROSIS
     Dosage: 70 MG SINGLE DOSE, ORAL
     Route: 048
     Dates: start: 20050929, end: 20050929
  58. TOPAMAX [Concomitant]
  59. NITROFURANTOIN [Concomitant]
  60. ENABLEX /01760401/ (DARIFENACIN) [Concomitant]
  61. CYMBALTA [Concomitant]

REACTIONS (12)
  - PATHOLOGICAL FRACTURE [None]
  - STRESS FRACTURE [None]
  - BONE DISORDER [None]
  - OSTEOPOROTIC FRACTURE [None]
  - FRACTURE NONUNION [None]
  - ARTHRALGIA [None]
  - LOW TURNOVER OSTEOPATHY [None]
  - GROIN PAIN [None]
  - MOBILITY DECREASED [None]
  - PAIN [None]
  - FEMUR FRACTURE [None]
  - FRACTURE DISPLACEMENT [None]
